FAERS Safety Report 24537989 (Version 1)
Quarter: 2024Q4

REPORT INFORMATION
  Report Type: Spontaneous
  Country: US (occurrence: US)
  Receive Date: 20241023
  Receipt Date: 20241023
  Transmission Date: 20250114
  Serious: No
  Sender: BRISTOL-MYERS SQUIBB COMPANY
  Company Number: US-BRISTOL-MYERS SQUIBB COMPANY-2024-165823

PATIENT
  Age: 80 Year
  Sex: Female

DRUGS (1)
  1. REVLIMID [Suspect]
     Active Substance: LENALIDOMIDE
     Indication: Plasma cell myeloma
     Dosage: FREQUENCY- CYCLIC
     Route: 048

REACTIONS (5)
  - Memory impairment [Unknown]
  - Nasopharyngitis [Unknown]
  - Abdominal pain lower [Unknown]
  - Diarrhoea [Unknown]
  - Product dose omission issue [Unknown]
